FAERS Safety Report 24911099 (Version 3)
Quarter: 2025Q2

REPORT INFORMATION
  Report Type: Report from Study
  Country: CR (occurrence: CR)
  Receive Date: 20250131
  Receipt Date: 20250502
  Transmission Date: 20250717
  Serious: Yes (Hospitalization, Other)
  Sender: ALEXION PHARMACEUTICALS
  Company Number: CR-AstraZeneca-CH-00792052A

PATIENT

DRUGS (1)
  1. ULTOMIRIS [Suspect]
     Active Substance: RAVULIZUMAB-CWVZ
     Indication: Paroxysmal nocturnal haemoglobinuria
     Dosage: 3300 MILLIGRAM, Q8W

REACTIONS (6)
  - Headache [Not Recovered/Not Resolved]
  - Dizziness [Unknown]
  - Gastritis [Unknown]
  - Abdominal pain lower [Unknown]
  - Menstrual disorder [Unknown]
  - Pain in extremity [Recovered/Resolved]
